FAERS Safety Report 13160769 (Version 3)
Quarter: 2018Q2

REPORT INFORMATION
  Report Type: Spontaneous
  Country: US (occurrence: US)
  Receive Date: 20170129
  Receipt Date: 20180525
  Transmission Date: 20180711
  Serious: Yes (Hospitalization, Other)
  Sender: FDA-Public Use
  Company Number: US-ASTRAZENECA-2017SE07843

PATIENT
  Age: 663 Month
  Sex: Male
  Weight: 92.5 kg

DRUGS (36)
  1. ATENOLOL. [Suspect]
     Active Substance: ATENOLOL
     Indication: BLOOD PRESSURE ABNORMAL
     Route: 065
  2. AMLODIPINE [Concomitant]
     Active Substance: AMLODIPINE BESYLATE
     Indication: HYPERTENSION
  3. AMLODIPINE [Concomitant]
     Active Substance: AMLODIPINE BESYLATE
     Indication: BLOOD CHOLESTEROL ABNORMAL
  4. FLONASE [Concomitant]
     Active Substance: FLUTICASONE PROPIONATE
     Indication: MULTIPLE ALLERGIES
  5. ATENOLOL. [Suspect]
     Active Substance: ATENOLOL
     Indication: HYPERTENSION
     Route: 065
  6. ATENOLOL. [Suspect]
     Active Substance: ATENOLOL
     Indication: BLOOD PRESSURE ABNORMAL
     Route: 065
  7. ATENOLOL. [Suspect]
     Active Substance: ATENOLOL
     Indication: HYPERTENSION
     Route: 065
  8. HUMIRA [Suspect]
     Active Substance: ADALIMUMAB
     Indication: CROHN^S DISEASE
     Dosage: TWO WEEKS AFTER 160 MG DOSE (80 MG,ONCE)
     Route: 058
     Dates: start: 2013, end: 2013
  9. TRAMADOL. [Concomitant]
     Active Substance: TRAMADOL
  10. DICYCLOMINE [Concomitant]
     Active Substance: DICYCLOMINE HYDROCHLORIDE
     Indication: ABDOMINAL PAIN
     Dosage: AS REQUIRED
  11. ZYRTEC [Concomitant]
     Active Substance: CETIRIZINE HYDROCHLORIDE
     Indication: MULTIPLE ALLERGIES
  12. ATORVASTATIN [Concomitant]
     Active Substance: ATORVASTATIN
     Indication: BLOOD CHOLESTEROL ABNORMAL
  13. ATENOLOL. [Suspect]
     Active Substance: ATENOLOL
     Indication: BLOOD CHOLESTEROL ABNORMAL
     Route: 065
  14. AMLODIPINE [Concomitant]
     Active Substance: AMLODIPINE BESYLATE
     Indication: BLOOD CHOLESTEROL ABNORMAL
  15. AMLODIPINE [Concomitant]
     Active Substance: AMLODIPINE BESYLATE
     Indication: BLOOD CHOLESTEROL ABNORMAL
  16. ATENOLOL. [Suspect]
     Active Substance: ATENOLOL
     Indication: BLOOD CHOLESTEROL ABNORMAL
     Route: 065
  17. TEMAZEPAM. [Concomitant]
     Active Substance: TEMAZEPAM
     Indication: INSOMNIA
  18. GABAPENTIN. [Concomitant]
     Active Substance: GABAPENTIN
     Indication: LIMB DISCOMFORT
  19. HUMIRA [Suspect]
     Active Substance: ADALIMUMAB
     Indication: CROHN^S DISEASE
     Dosage: FOUR WEEKS AFTER 160 MG DOSE (40 MG,1 IN 2 WK)
     Route: 058
     Dates: start: 2013
  20. SYNTHROID [Suspect]
     Active Substance: LEVOTHYROXINE SODIUM
     Indication: HYPOTHYROIDISM
     Dosage: TOOK ONE HALF TABLET (62.5 MCG, ONE IN ONE DAY)
     Route: 048
     Dates: start: 201604
  21. AMLODIPINE [Concomitant]
     Active Substance: AMLODIPINE BESYLATE
     Indication: BLOOD CHOLESTEROL ABNORMAL
  22. AMLODIPINE [Concomitant]
     Active Substance: AMLODIPINE BESYLATE
     Indication: BLOOD CHOLESTEROL ABNORMAL
  23. ZOFRAN [Concomitant]
     Active Substance: ONDANSETRON HYDROCHLORIDE
     Indication: NAUSEA
     Dosage: AS REQUIRED
  24. ATENOLOL. [Suspect]
     Active Substance: ATENOLOL
     Indication: BLOOD CHOLESTEROL ABNORMAL
     Route: 065
  25. CRESTOR [Suspect]
     Active Substance: ROSUVASTATIN CALCIUM
     Indication: BLOOD CHOLESTEROL INCREASED
     Route: 048
     Dates: start: 201412
  26. HUMIRA [Suspect]
     Active Substance: ADALIMUMAB
     Indication: CROHN^S DISEASE
     Dosage: FOUR WEEKS AFTER 160 MG DOSE (40 MG,1 IN 2 WK)
     Route: 058
     Dates: start: 2013, end: 201307
  27. IMURAN [Concomitant]
     Active Substance: AZATHIOPRINE
     Indication: CROHN^S DISEASE
  28. TEMAZEPAM. [Concomitant]
     Active Substance: TEMAZEPAM
     Indication: BLOOD CHOLESTEROL ABNORMAL
  29. HUMIRA [Suspect]
     Active Substance: ADALIMUMAB
     Indication: CROHN^S DISEASE
     Dosage: 40MG/0.8ML, LOADING DOSE (160 MG,ONCE)
     Route: 058
     Dates: start: 20130411, end: 20130411
  30. SYNTHROID [Suspect]
     Active Substance: LEVOTHYROXINE SODIUM
     Indication: HYPOTHYROIDISM
     Route: 048
     Dates: end: 201604
  31. AMLODIPINE [Concomitant]
     Active Substance: AMLODIPINE BESYLATE
     Indication: HYPERTENSION
  32. AMLODIPINE [Concomitant]
     Active Substance: AMLODIPINE BESYLATE
     Indication: HYPERTENSION
  33. AMLODIPINE [Concomitant]
     Active Substance: AMLODIPINE BESYLATE
     Indication: BLOOD CHOLESTEROL ABNORMAL
  34. HYOSCYAMINE. [Concomitant]
     Active Substance: HYOSCYAMINE
     Indication: ABDOMINAL PAIN
     Dosage: AS REQUIRED
  35. ATENOLOL. [Suspect]
     Active Substance: ATENOLOL
     Indication: HYPERTENSION
     Route: 065
  36. ATENOLOL. [Suspect]
     Active Substance: ATENOLOL
     Indication: BLOOD PRESSURE ABNORMAL
     Route: 065

REACTIONS (16)
  - Abdominal pain upper [Not Recovered/Not Resolved]
  - Hernia [Recovered/Resolved]
  - Intestinal stenosis [Recovered/Resolved]
  - Rectal discharge [Recovered/Resolved]
  - Fat tissue increased [Unknown]
  - Faecaloma [Recovered/Resolved]
  - Pain in extremity [Not Recovered/Not Resolved]
  - Rash [Unknown]
  - Blood thyroid stimulating hormone increased [Not Recovered/Not Resolved]
  - Feeling abnormal [Recovered/Resolved]
  - Dysuria [Recovered/Resolved]
  - Postoperative adhesion [Recovering/Resolving]
  - Abdominal hernia [Recovered/Resolved]
  - Back pain [Unknown]
  - Colitis [Recovered/Resolved]
  - Pain [Not Recovered/Not Resolved]

NARRATIVE: CASE EVENT DATE: 201307
